FAERS Safety Report 4320193-4 (Version None)
Quarter: 2004Q1

REPORT INFORMATION
  Report Type: 
  Country: None (occurrence: None)
  Receive Date: 20040317
  Receipt Date: 20040305
  Transmission Date: 20041129
  Serious: Yes (Other)
  Sender: FDA-Public Use
  Company Number: US-JNJFOC-20040301634

PATIENT
  Age: 67 Year
  Sex: Female
  Weight: 126.1 kg

DRUGS (16)
  1. REMICADE [Suspect]
     Indication: RHEUMATOID ARTHRITIS
     Dosage: 400 MG, INTRAVENOUS
     Route: 042
     Dates: start: 20030501
  2. REMICADE [Suspect]
     Indication: RHEUMATOID ARTHRITIS
     Dosage: 400 MG, INTRAVENOUS
     Route: 042
     Dates: start: 20031230
  3. FLONASE [Concomitant]
  4. FOSAMAX [Concomitant]
  5. GLUCOPHAGE [Concomitant]
  6. PLACQUENIL (HYDROXYCHLOROQUINE PHOSPHATE) [Concomitant]
  7. VERAPAMIL [Concomitant]
  8. WARFARIN SODIUM [Concomitant]
  9. PREVACID [Concomitant]
  10. CITRACEL (CALCIUM CITRATE) [Concomitant]
  11. PREDNISONE [Concomitant]
  12. DARVOCET (PROPACET) [Concomitant]
  13. ZYRTEC [Concomitant]
  14. IMURAN [Concomitant]
  15. LIPITOR [Concomitant]
  16. BABY ACETYLSALICYLIC ACID (ACETYLSALICYLIC ACID) [Concomitant]

REACTIONS (2)
  - BONE SARCOMA [None]
  - LUNG CANCER METASTATIC [None]
